FAERS Safety Report 10022674 (Version 2)
Quarter: 2014Q2

REPORT INFORMATION
  Report Type: Spontaneous
  Country: US (occurrence: US)
  Receive Date: 20140319
  Receipt Date: 20140415
  Transmission Date: 20141212
  Serious: Yes (Hospitalization)
  Sender: FDA-Public Use
  Company Number: US-PFIZER INC-2014077721

PATIENT
  Age: 28 Year
  Sex: Male

DRUGS (4)
  1. DILANTIN-125 [Suspect]
     Dosage: UNK
  2. RANITIDINE HYDROCHLORIDE [Interacting]
     Indication: GASTROOESOPHAGEAL REFLUX DISEASE
     Dosage: 75 MG, 2X/DAY
  3. KLONOPIN [Concomitant]
     Dosage: UNK
  4. CLONAZEPAM [Concomitant]
     Dosage: UNK

REACTIONS (2)
  - Drug interaction [Recovered/Resolved]
  - Convulsion [Recovered/Resolved]
